FAERS Safety Report 6244072-0 (Version None)
Quarter: 2009Q2

REPORT INFORMATION
  Report Type: 
  Country: None (occurrence: None)
  Receive Date: 20090623
  Receipt Date: 20090623
  Transmission Date: 20091009
  Serious: Yes (Hospitalization)
  Sender: FDA-Public Use
  Company Number: None

PATIENT
  Age: 76 Year
  Sex: Male
  Weight: 77.6 kg

DRUGS (1)
  1. ACETYLCYSTEINE [Suspect]
     Dates: start: 20090406, end: 20090407

REACTIONS (3)
  - DYSPNOEA [None]
  - LIP SWELLING [None]
  - SWOLLEN TONGUE [None]
